FAERS Safety Report 19822698 (Version 1)
Quarter: 2021Q3

REPORT INFORMATION
  Report Type: Spontaneous
  Country: US (occurrence: US)
  Receive Date: 20210913
  Receipt Date: 20210913
  Transmission Date: 20211014
  Serious: No
  Sender: FDA-Public Use
  Company Number: US-GW PHARMA-202109USGW04344

PATIENT

DRUGS (1)
  1. EPIDIOLEX [Suspect]
     Active Substance: CANNABIDIOL
     Indication: SEVERE MYOCLONIC EPILEPSY OF INFANCY
     Dosage: UNK (WEANING OFF)
     Route: 048

REACTIONS (2)
  - Seizure [Unknown]
  - Drug ineffective [Unknown]
